FAERS Safety Report 7892748-1 (Version None)
Quarter: 2011Q4

REPORT INFORMATION
  Report Type: 
  Country: None (occurrence: None)
  Receive Date: 20111104
  Receipt Date: 20111028
  Transmission Date: 20120403
  Serious: Yes (Other)
  Sender: FDA-Public Use
  Company Number: US-B.I. PHARMACEUTICALS,INC./RIDGEFIELD-2011-BP-25361PF

PATIENT
  Sex: Female

DRUGS (3)
  1. PROCARDIA [Suspect]
     Route: 065
  2. SPIRIVA [Suspect]
  3. LIPITOR [Suspect]
     Route: 065

REACTIONS (3)
  - DYSPNOEA [None]
  - CHRONIC OBSTRUCTIVE PULMONARY DISEASE [None]
  - COUGH [None]
